FAERS Safety Report 11495318 (Version 1)
Quarter: 2015Q3

REPORT INFORMATION
  Report Type: Spontaneous
  Country: US (occurrence: US)
  Receive Date: 20150911
  Receipt Date: 20150911
  Transmission Date: 20151125
  Serious: No
  Sender: FDA-Public Use
  Company Number: US-ROCHE-1019507

PATIENT
  Sex: Male

DRUGS (4)
  1. COPEGUS [Suspect]
     Active Substance: RIBAVIRIN
     Indication: HEPATITIS C
     Route: 065
  2. BOCEPREVIR [Suspect]
     Active Substance: BOCEPREVIR
     Indication: HEPATITIS C
     Route: 065
  3. GABAPENTIN. [Suspect]
     Active Substance: GABAPENTIN
     Indication: PRURITUS
     Route: 065
  4. PEGASYS [Suspect]
     Active Substance: PEGINTERFERON ALFA-2A
     Indication: HEPATITIS C
     Route: 065

REACTIONS (5)
  - Adverse reaction [Unknown]
  - Headache [Unknown]
  - Gastric disorder [Unknown]
  - Hypoaesthesia [Unknown]
  - Paraesthesia [Unknown]
